FAERS Safety Report 6846620-6 (Version None)
Quarter: 2010Q3

REPORT INFORMATION
  Report Type: 
  Country: None (occurrence: None)
  Receive Date: 20100715
  Receipt Date: 20080205
  Transmission Date: 20110219
  Serious: No
  Sender: FDA-Public Use
  Company Number: US-PFIZER INC-2007078776

PATIENT
  Sex: Female
  Weight: 38.6 kg

DRUGS (15)
  1. CHANTIX [Suspect]
     Indication: SMOKING CESSATION THERAPY
     Route: 048
     Dates: start: 20070225, end: 20070701
  2. PLAQUENIL [Concomitant]
     Indication: SYSTEMIC LUPUS ERYTHEMATOSUS
     Route: 048
     Dates: start: 20010101
  3. PREDNISONE [Concomitant]
     Indication: SYSTEMIC LUPUS ERYTHEMATOSUS
     Route: 048
     Dates: start: 20010101
  4. TRAMADOL [Concomitant]
  5. FLONASE [Concomitant]
  6. IBANDRONATE SODIUM [Concomitant]
     Route: 042
  7. VITAMIN D [Concomitant]
     Dosage: 50000 UNIT
  8. CELEBREX [Concomitant]
  9. VALIUM [Concomitant]
  10. VENLAFAXINE HYDROCHLORIDE [Concomitant]
  11. ADVAIR DISKUS 100/50 [Concomitant]
  12. PHENOBARBITAL [Concomitant]
  13. PHENYTOIN [Concomitant]
  14. HYDROXYCHLOROQUINE [Concomitant]
  15. DILANTIN [Concomitant]

REACTIONS (3)
  - DRUG INEFFECTIVE [None]
  - HEADACHE [None]
  - WEIGHT INCREASED [None]
